FAERS Safety Report 9928995 (Version 2)
Quarter: 2014Q1

REPORT INFORMATION
  Report Type: Spontaneous
  Country: US (occurrence: None)
  Receive Date: 20140224
  Receipt Date: 20140305
  Transmission Date: 20141002
  Serious: Yes (Hospitalization)
  Sender: FDA-Public Use
  Company Number: PIN-2014-00004

PATIENT
  Age: 66 Year
  Sex: Male

DRUGS (2)
  1. PHOTOFRIN [Suspect]
     Indication: PANCREATIC CARCINOMA
     Dosage: TOTAL DOSE
     Route: 042
     Dates: start: 20130909, end: 20130909
  2. GEMCITABINE [Concomitant]

REACTIONS (3)
  - Renal failure acute [None]
  - Dehydration [None]
  - Anaemia [None]
